FAERS Safety Report 7624212-9 (Version None)
Quarter: 2011Q3

REPORT INFORMATION
  Report Type: 
  Country: None (occurrence: None)
  Receive Date: 20110719
  Receipt Date: 20110719
  Transmission Date: 20111222
  Serious: Yes (Hospitalization)
  Sender: FDA-Public Use
  Company Number: None

PATIENT
  Sex: Female
  Weight: 62.95 kg

DRUGS (2)
  1. CISPLATIN [Suspect]
     Dosage: 124 MG
     Dates: end: 20110708
  2. PACLITAXEL [Suspect]
     Dosage: 223 MG
     Dates: end: 20110707

REACTIONS (1)
  - ILEUS [None]
